FAERS Safety Report 16583014 (Version 2)
Quarter: 2019Q3

REPORT INFORMATION
  Report Type: Spontaneous
  Country: US (occurrence: US)
  Receive Date: 20190717
  Receipt Date: 20190723
  Transmission Date: 20191004
  Serious: No
  Sender: FDA-Public Use
  Company Number: US-PFIZER INC-2019275697

PATIENT
  Age: 45 Year
  Sex: Female
  Weight: 88.44 kg

DRUGS (3)
  1. LYRICA [Suspect]
     Active Substance: PREGABALIN
     Indication: BIPOLAR DISORDER
     Dosage: UNK, TWICE A DAY
  2. LYRICA [Suspect]
     Active Substance: PREGABALIN
     Indication: POST-TRAUMATIC STRESS DISORDER
     Dosage: 150 MG, THREE TIMES DAILY
     Route: 048
  3. LYRICA [Suspect]
     Active Substance: PREGABALIN
     Indication: ANXIETY

REACTIONS (8)
  - Off label use [Unknown]
  - Irritability [Unknown]
  - Discomfort [Unknown]
  - Product use in unapproved indication [Unknown]
  - Tremor [Not Recovered/Not Resolved]
  - Formication [Unknown]
  - Withdrawal syndrome [Unknown]
  - Anxiety [Unknown]
